FAERS Safety Report 12579219 (Version 1)
Quarter: 2016Q3

REPORT INFORMATION
  Report Type: Spontaneous
  Country: US (occurrence: US)
  Receive Date: 20160721
  Receipt Date: 20160721
  Transmission Date: 20161109
  Serious: Yes (Hospitalization)
  Sender: FDA-Public Use
  Company Number: US-APOPHARMA USA, INC.-2016AP009810

PATIENT
  Age: 52 Year
  Sex: Male
  Weight: 76 kg

DRUGS (1)
  1. ALKERAN [Suspect]
     Active Substance: MELPHALAN
     Indication: PLASMA CELL MYELOMA
     Dosage: 200 MG/M2, QD
     Route: 042
     Dates: start: 20150420, end: 20150421

REACTIONS (1)
  - Febrile neutropenia [Recovered/Resolved]

NARRATIVE: CASE EVENT DATE: 20150428
